FAERS Safety Report 4750458-3 (Version None)
Quarter: 2005Q3

REPORT INFORMATION
  Report Type: 
  Country: None (occurrence: None)
  Receive Date: 20050823
  Receipt Date: 20050817
  Transmission Date: 20060218
  Serious: Yes (Death, Hospitalization)
  Sender: FDA-Public Use
  Company Number: FRPFM-E-20050086

PATIENT
  Age: 56 Year
  Sex: Male

DRUGS (2)
  1. NAVELBINE [Suspect]
     Indication: LUNG NEOPLASM MALIGNANT
     Route: 042
     Dates: start: 20030602, end: 20030703
  2. CISPLATIN [Suspect]
     Indication: LUNG NEOPLASM MALIGNANT
     Route: 065
     Dates: start: 20030602, end: 20030703

REACTIONS (9)
  - AGRANULOCYTOSIS [None]
  - DEHYDRATION [None]
  - DIARRHOEA [None]
  - ESCHERICHIA SEPSIS [None]
  - PNEUMONIA [None]
  - PNEUMONIA KLEBSIELLA [None]
  - SEPSIS [None]
  - SEPTIC SHOCK [None]
  - STAPHYLOCOCCAL SEPSIS [None]
